FAERS Safety Report 13026244 (Version 2)
Quarter: 2018Q1

REPORT INFORMATION
  Report Type: Spontaneous
  Country: US (occurrence: US)
  Receive Date: 20161214
  Receipt Date: 20180126
  Transmission Date: 20180508
  Serious: No
  Sender: FDA-Public Use
  Company Number: US-WEST-WARD PHARMACEUTICALS CORP.-US-H14001-16-02622

PATIENT
  Age: 55 Year
  Sex: Male

DRUGS (2)
  1. BALSALAZIDE DISODIUM. [Suspect]
     Active Substance: BALSALAZIDE DISODIUM
     Indication: COLITIS
     Route: 048
  2. SULFADINE [Suspect]
     Active Substance: SULFAMETHAZINE
     Indication: PRODUCT USED FOR UNKNOWN INDICATION
     Route: 065

REACTIONS (1)
  - Rash [Recovered/Resolved]
